FAERS Safety Report 14131582 (Version 3)
Quarter: 2018Q1

REPORT INFORMATION
  Report Type: Spontaneous
  Country: JP (occurrence: JP)
  Receive Date: 20171026
  Receipt Date: 20180119
  Transmission Date: 20180508
  Serious: Yes (Other)
  Sender: FDA-Public Use
  Company Number: JP-NAPPMUNDI-GBR-2017-0050068

PATIENT
  Sex: Female

DRUGS (13)
  1. WARFARIN POTASSIUM [Interacting]
     Active Substance: WARFARIN POTASSIUM
     Dosage: 2.5 MG, DAILY
     Route: 048
  2. FLUOROURACIL. [Concomitant]
     Active Substance: FLUOROURACIL
     Indication: METASTASES TO LIVER
  3. OXYCONTIN [Suspect]
     Active Substance: OXYCODONE HYDROCHLORIDE
     Indication: PAIN
     Dosage: 20 MG, DAILY
     Route: 048
  4. WARFARIN POTASSIUM [Interacting]
     Active Substance: WARFARIN POTASSIUM
     Indication: PELVIC VENOUS THROMBOSIS
     Dosage: 1 MG, DAILY
     Route: 048
  5. BEVACIZUMAB. [Concomitant]
     Active Substance: BEVACIZUMAB
     Indication: METASTASES TO LIVER
  6. FLUOROURACIL. [Concomitant]
     Active Substance: FLUOROURACIL
     Indication: METASTASES TO PERITONEUM
  7. FOLIN                              /00024201/ [Concomitant]
     Active Substance: FOLIC ACID
     Indication: METASTASES TO PERITONEUM
  8. BEVACIZUMAB. [Concomitant]
     Active Substance: BEVACIZUMAB
     Indication: METASTASES TO PERITONEUM
  9. FOLIN                              /00024201/ [Concomitant]
     Active Substance: FOLIC ACID
     Indication: METASTASES TO LIVER
  10. WARFARIN POTASSIUM [Interacting]
     Active Substance: WARFARIN POTASSIUM
     Dosage: 2 MG, DAILY
     Route: 048
  11. OXALIPLATIN. [Concomitant]
     Active Substance: OXALIPLATIN
     Indication: METASTASES TO PERITONEUM
  12. WARFARIN POTASSIUM [Interacting]
     Active Substance: WARFARIN POTASSIUM
     Indication: PULMONARY ARTERY THROMBOSIS
     Dosage: 1.5 MG, DAILY
     Route: 048
  13. OXALIPLATIN. [Concomitant]
     Active Substance: OXALIPLATIN
     Indication: METASTASES TO LIVER

REACTIONS (2)
  - International normalised ratio increased [Unknown]
  - Drug interaction [Unknown]
